FAERS Safety Report 17125004 (Version 2)
Quarter: 2019Q4

REPORT INFORMATION
  Report Type: Spontaneous
  Country: FR (occurrence: FR)
  Receive Date: 20191206
  Receipt Date: 20191230
  Transmission Date: 20200122
  Serious: Yes (Hospitalization)
  Sender: FDA-Public Use
  Company Number: FR-009507513-1912FRA002398

PATIENT
  Sex: Female

DRUGS (3)
  1. PEGINTERFERON ALFA-2B [Suspect]
     Active Substance: PEGINTERFERON ALFA-2B
     Indication: HEPATITIS C
     Dosage: EVERY WEEK
     Dates: start: 19980430
  2. REBETOL [Suspect]
     Active Substance: RIBAVIRIN
     Dosage: 200 MG EVERY 4 DAYS
     Dates: start: 20110910, end: 20120223
  3. BOCEPREVIR [Suspect]
     Active Substance: BOCEPREVIR
     Indication: HEPATITIS C
     Dosage: 200 MILLIGRAM, EVERY 12 DAYS
     Dates: start: 20110910, end: 20120223

REACTIONS (1)
  - Alcohol detoxification [Recovering/Resolving]
